FAERS Safety Report 4631201-5 (Version None)
Quarter: 2005Q2

REPORT INFORMATION
  Report Type: 
  Country: None (occurrence: None)
  Receive Date: 20050407
  Receipt Date: 20050407
  Transmission Date: 20051028
  Serious: Yes (Hospitalization)
  Sender: FDA-Public Use
  Company Number: None

PATIENT
  Sex: Male
  Weight: 96.7 kg

DRUGS (9)
  1. ZOSYN [Suspect]
     Dosage: 3.375 GM Q 6 H IV
     Route: 042
  2. CLONAZEPAM [Concomitant]
  3. DIVALPROEX SODIUM [Concomitant]
  4. THIAMINE [Concomitant]
  5. QUETIAPINE [Concomitant]
  6. VENLAFAXIN [Concomitant]
  7. FOLIC ACID [Concomitant]
  8. ACETAMINOPHEN [Concomitant]
  9. GATIFLOXOCIN [Concomitant]

REACTIONS (1)
  - THROMBOCYTOPENIA [None]
